FAERS Safety Report 10180048 (Version 1)
Quarter: 2014Q2

REPORT INFORMATION
  Report Type: Spontaneous
  Country: US (occurrence: US)
  Receive Date: 20140519
  Receipt Date: 20140519
  Transmission Date: 20141212
  Serious: No
  Sender: FDA-Public Use
  Company Number: US-AMGEN INC.-USASP2013071870

PATIENT
  Age: 54 Year
  Sex: Male

DRUGS (10)
  1. PROLIA [Suspect]
     Indication: OSTEOPOROSIS
     Dosage: UNK
     Route: 065
     Dates: start: 20131004
  2. CALCIUM [Concomitant]
  3. VITAMIN D                          /00107901/ [Concomitant]
  4. TESTOSTERONE                       /00103102/ [Concomitant]
     Dosage: 100 MG, EVERY 12 DAYS
     Route: 042
  5. VERAPAMIL [Concomitant]
     Indication: MIGRAINE
     Dosage: 240 MG, QD
  6. WELLBUTRIN [Concomitant]
     Dosage: 150 MG, QD
  7. ZYRTEC [Concomitant]
     Indication: HYPERSENSITIVITY
     Dosage: UNK UNK, QD
  8. FLONASE                            /00908302/ [Concomitant]
     Indication: HYPERSENSITIVITY
     Dosage: UNK UNK, QD
  9. CENTRUM SILVER                     /02363801/ [Concomitant]
  10. MELATONIN [Concomitant]

REACTIONS (1)
  - Constipation [Unknown]
